FAERS Safety Report 19783549 (Version 1)
Quarter: 2021Q3

REPORT INFORMATION
  Report Type: Spontaneous
  Country: US (occurrence: US)
  Receive Date: 20210902
  Receipt Date: 20210902
  Transmission Date: 20211014
  Serious: Yes (Death)
  Sender: FDA-Public Use
  Company Number: None

PATIENT
  Sex: Female

DRUGS (1)
  1. SODIUM CHLORIDE 0.9% NEBULIZER SOLUTION [Suspect]
     Active Substance: SODIUM CHLORIDE

REACTIONS (1)
  - Death [None]
